FAERS Safety Report 12227858 (Version 1)
Quarter: 2016Q2

REPORT INFORMATION
  Report Type: Spontaneous
  Country: FR (occurrence: FR)
  Receive Date: 20160401
  Receipt Date: 20160401
  Transmission Date: 20160815
  Serious: Yes (Other)
  Sender: FDA-Public Use
  Company Number: FR-JAZZ-2016-FR-005544

PATIENT

DRUGS (5)
  1. ONCASPAR [Concomitant]
     Active Substance: PEGASPARGASE
     Indication: T-CELL TYPE ACUTE LEUKAEMIA
     Dosage: 4025 IU, ON DAY 1
     Route: 042
     Dates: start: 20151116
  2. VINCRISTINE HOSPIRA [Concomitant]
     Active Substance: VINCRISTINE
     Indication: T-CELL TYPE ACUTE LEUKAEMIA
     Dosage: 2 MG, DAY 8, 15, 22 AND 29
     Route: 042
     Dates: start: 20151116
  3. DOXORUBICINE TEVA [Concomitant]
     Active Substance: DOXORUBICIN
     Indication: T-CELL TYPE ACUTE LEUKAEMIA
     Dosage: 48 MG, DAY 8, 15, 22 AND 29
     Route: 042
     Dates: start: 20151116
  4. ERWINASE [Suspect]
     Active Substance: ASPARAGINASE ERWINIA CHRYSANTHEMI
     Indication: T-CELL TYPE ACUTE LEUKAEMIA
     Dosage: 32200 IU, DAY 1, 3, 5, 8, 10 AND 12
     Route: 042
     Dates: start: 20151118
  5. DEXAMETHASONE. [Concomitant]
     Active Substance: DEXAMETHASONE
     Indication: T-CELL TYPE ACUTE LEUKAEMIA
     Dosage: 5.36 MG X 3 FROM DAY 8 TO 21
     Route: 048
     Dates: start: 20151116

REACTIONS (1)
  - Bone marrow failure [Recovering/Resolving]

NARRATIVE: CASE EVENT DATE: 20151214
